FAERS Safety Report 6678050-4 (Version None)
Quarter: 2010Q2

REPORT INFORMATION
  Report Type: 
  Country: None (occurrence: None)
  Receive Date: 20100412
  Receipt Date: 20100331
  Transmission Date: 20101027
  Serious: Yes (Other)
  Sender: FDA-Public Use
  Company Number: PHHY2010GB15566

PATIENT
  Sex: Female

DRUGS (5)
  1. RASILEZ [Suspect]
     Indication: HYPERTENSION
     Dosage: 150 MG, UNK
     Dates: end: 20100309
  2. AMLODIPINE [Concomitant]
     Dosage: 5 MG, QD
     Route: 048
  3. BISOPROLOL [Concomitant]
     Dosage: 2.5 MG, QD
     Route: 048
  4. EZETIMIBE [Concomitant]
     Dosage: 10 MG, QD
     Route: 048
     Dates: start: 20100114
  5. LISINOPRIL [Concomitant]
     Dosage: 10 MG, QD
     Route: 048

REACTIONS (4)
  - ANGIOEDEMA [None]
  - INFLAMMATION [None]
  - OEDEMA PERIPHERAL [None]
  - SWELLING FACE [None]
